FAERS Safety Report 18526222 (Version 1)
Quarter: 2020Q4

REPORT INFORMATION
  Report Type: Spontaneous
  Country: US (occurrence: US)
  Receive Date: 20201119
  Receipt Date: 20201119
  Transmission Date: 20210114
  Serious: Yes (Hospitalization)
  Sender: FDA-Public Use
  Company Number: None

PATIENT
  Sex: Female
  Weight: 80.8 kg

DRUGS (1)
  1. OLANZAPINE (754829) [Suspect]
     Active Substance: OLANZAPINE
     Dates: end: 20201023

REACTIONS (8)
  - Dyspnoea [None]
  - Cough [None]
  - Pulmonary embolism [None]
  - Diarrhoea [None]
  - Deep vein thrombosis [None]
  - Pneumonia [None]
  - Dysuria [None]
  - Pyrexia [None]

NARRATIVE: CASE EVENT DATE: 20201110
